FAERS Safety Report 9999443 (Version 1)
Quarter: 2014Q1

REPORT INFORMATION
  Report Type: Spontaneous
  Country: US (occurrence: None)
  Receive Date: 20140311
  Receipt Date: 20140311
  Transmission Date: 20141002
  Serious: Yes (Other)
  Sender: FDA-Public Use
  Company Number: None

PATIENT
  Age: 89 Year
  Sex: Female

DRUGS (1)
  1. TASIGNA [Suspect]
     Route: 048
     Dates: start: 20130123

REACTIONS (2)
  - Constipation [None]
  - Blindness unilateral [None]
